FAERS Safety Report 4975607-3 (Version None)
Quarter: 2006Q2

REPORT INFORMATION
  Report Type: 
  Country: None (occurrence: None)
  Receive Date: 20060411
  Receipt Date: 20060329
  Transmission Date: 20061013
  Serious: Yes (Hospitalization)
  Sender: FDA-Public Use
  Company Number: 02100-JPN-06-0128

PATIENT
  Age: 64 Year
  Sex: Female

DRUGS (2)
  1. CILOSTAZOL [Suspect]
     Dosage: 200 MG ORAL
     Route: 048
     Dates: start: 20060109
  2. CHEMOTHERAPY [Concomitant]

REACTIONS (1)
  - PYELONEPHRITIS ACUTE [None]
